FAERS Safety Report 12059091 (Version 7)
Quarter: 2017Q3

REPORT INFORMATION
  Report Type: Report from Study
  Country: BR (occurrence: BR)
  Receive Date: 20160210
  Receipt Date: 20170912
  Transmission Date: 20171127
  Serious: Yes (Life-Threatening, Other)
  Sender: FDA-Public Use
  Company Number: PHHY2015BR074151

PATIENT
  Sex: Female
  Weight: 90 kg

DRUGS (17)
  1. XOLAIR [Suspect]
     Active Substance: OMALIZUMAB
     Indication: ASTHMA
     Dosage: 1 DF, EVERY 15 DAYS
     Route: 058
     Dates: start: 2010
  2. PREDSIM [Concomitant]
     Active Substance: PREDNISOLONE
     Indication: ASTHMA
     Dosage: 2 DF, QD (FOR 3 DAYS)
     Route: 048
     Dates: start: 20170817
  3. BEROTEC [Concomitant]
     Active Substance: FENOTEROL HYDROBROMIDE
     Indication: ASTHMA
     Dosage: UNK
     Route: 055
  4. BEROTEC [Concomitant]
     Active Substance: FENOTEROL HYDROBROMIDE
     Dosage: 5 DROPS, UNK
     Route: 055
     Dates: start: 20170817
  5. XOLAIR [Suspect]
     Active Substance: OMALIZUMAB
     Dosage: 150 MG, BIW (EVERY 2 WEEKS)
     Route: 058
     Dates: start: 20120501
  6. ATROVENT [Concomitant]
     Active Substance: IPRATROPIUM BROMIDE
     Dosage: 20 DROPS, UNK
     Route: 055
     Dates: end: 20170817
  7. APRESOLINE HYDROCHLORIDE [Concomitant]
     Active Substance: HYDRALAZINE HYDROCHLORIDE
     Indication: HYPERTENSION
     Dosage: 2 DF, QD
     Route: 048
  8. SPIRONOLACTONE. [Concomitant]
     Active Substance: SPIRONOLACTONE
     Indication: HYPERTENSION
     Dosage: 1 DF, QD
     Route: 048
  9. AEROLIN [Concomitant]
     Active Substance: ALBUTEROL
     Indication: ASTHMA
     Dosage: UNK UNK, TID
     Route: 048
     Dates: start: 20170817, end: 20170820
  10. PREDSIM [Concomitant]
     Active Substance: PREDNISOLONE
     Dosage: 1 DF, QD (FOR 2 DAYS)
     Route: 048
     Dates: end: 20170822
  11. FORASEQ [Suspect]
     Active Substance: BUDESONIDE\FORMOTEROL FUMARATE
     Indication: ASTHMA
     Dosage: 2 DF (12 + 400 MCG), QMO
     Route: 055
     Dates: start: 2009
  12. HYDROCHLOROTHIAZIDE. [Concomitant]
     Active Substance: HYDROCHLOROTHIAZIDE
     Indication: HYPERTENSION
     Dosage: 1 DF, QD
     Route: 048
  13. MONTELUKAST [Concomitant]
     Active Substance: MONTELUKAST SODIUM
     Indication: ASTHMA
     Dosage: 1 DF (10 MG), QD
     Route: 048
     Dates: start: 2017
  14. XOLAIR [Suspect]
     Active Substance: OMALIZUMAB
     Dosage: 2 DF, QMO
     Route: 058
     Dates: end: 201702
  15. BRASART [Concomitant]
     Active Substance: VALSARTAN
     Indication: HYPERTENSION
     Dosage: 1 DF, QD
     Route: 048
  16. SIMVASTATIN. [Concomitant]
     Active Substance: SIMVASTATIN
     Indication: BLOOD CHOLESTEROL INCREASED
     Dosage: 1 DF, QD
     Route: 048
  17. ATROVENT [Concomitant]
     Active Substance: IPRATROPIUM BROMIDE
     Indication: ASTHMA
     Route: 055

REACTIONS (25)
  - Cough [Recovering/Resolving]
  - Mite allergy [Unknown]
  - Joint swelling [Recovering/Resolving]
  - Arthralgia [Recovering/Resolving]
  - Pain [Unknown]
  - Cough [Recovered/Resolved]
  - Dysphonia [Unknown]
  - Apparent death [Unknown]
  - Asthmatic crisis [Recovered/Resolved]
  - Spinal fracture [Recovering/Resolving]
  - Fungal infection [Unknown]
  - Malaise [Recovering/Resolving]
  - Weight decreased [Unknown]
  - Asthma [Recovering/Resolving]
  - Wheezing [Unknown]
  - Speech disorder [Recovering/Resolving]
  - Sensitivity to weather change [Recovering/Resolving]
  - Fall [Recovering/Resolving]
  - Asthma [Recovered/Resolved]
  - Cardiomegaly [Unknown]
  - Pain in extremity [Recovering/Resolving]
  - Feeding disorder [Unknown]
  - Asthenia [Unknown]
  - Body height decreased [Unknown]
  - Osteoarthritis [Recovering/Resolving]

NARRATIVE: CASE EVENT DATE: 2014
